FAERS Safety Report 7581174 (Version 4)
Quarter: 2012Q4

REPORT INFORMATION
  Report Type: Spontaneous
  Country: None (occurrence: None)
  Receive Date: 20100831
  Receipt Date: 20121022
  Transmission Date: 20130627
  Serious: Yes (Death)
  Sender: FDA-Public Use
  Company Number: AUR-APL-2010-02070

PATIENT
  Age: 47 Year
  Sex: Male

DRUGS (2)
  1. PAROXETINE (PAROXETINE) [Suspect]
     Indication: DRUG USE FOR UNKNOWN INDICATION
     Dosage: 60MG, DAILY
  2. CLOZAPINE [Suspect]
     Indication: DRUG USE FOR UNKNOWN INDICATION
     Dosage: 500 mg (250 mg,2 in 1 D),Oral
     Route: 048
     Dates: start: 20050805, end: 20100318

REACTIONS (5)
  - Fall [None]
  - Coronary artery disease [None]
  - Antidepressant drug level increased [None]
  - Antipsychotic drug level increased [None]
  - Condition aggravated [None]
